FAERS Safety Report 8008022-9 (Version None)
Quarter: 2011Q4

REPORT INFORMATION
  Report Type: 
  Country: None (occurrence: None)
  Receive Date: 20111123
  Receipt Date: 20111010
  Transmission Date: 20120403
  Serious: No
  Sender: FDA-Public Use
  Company Number: 336905

PATIENT
  Age: 62 Year
  Sex: Male

DRUGS (4)
  1. METFORMIN HCL [Suspect]
  2. VICTOZA [Suspect]
     Indication: TYPE 2 DIABETES MELLITUS
     Dosage: 1.8 MG, QD, SUBCUTANEOUS
     Route: 058
  3. LEVEMIR [Suspect]
     Indication: TYPE 2 DIABETES MELLITUS
     Dosage: SIBCUTANEOUS
     Route: 059
  4. CRESTOR [Suspect]

REACTIONS (3)
  - SOMNOLENCE [None]
  - BLOOD GLUCOSE INCREASED [None]
  - HYPERHIDROSIS [None]
